FAERS Safety Report 10020591 (Version 2)
Quarter: 2014Q2

REPORT INFORMATION
  Report Type: Spontaneous
  Country: US (occurrence: US)
  Receive Date: 20140319
  Receipt Date: 20140516
  Transmission Date: 20141212
  Serious: No
  Sender: FDA-Public Use
  Company Number: US-UCBSA-114534

PATIENT
  Age: 21 Year
  Sex: Female

DRUGS (3)
  1. CIMZIA [Suspect]
     Indication: CROHN^S DISEASE
     Route: 058
     Dates: start: 20140125, end: 2014
  2. HUMIRA [Concomitant]
     Dosage: 40MG
     Dates: start: 200710, end: 20140112
  3. LEVSIN [Concomitant]
     Indication: ABDOMINAL PAIN
     Route: 060

REACTIONS (2)
  - Dyspnoea [Recovered/Resolved]
  - Urticaria [Recovered/Resolved]
